FAERS Safety Report 9228230 (Version 3)
Quarter: 2013Q3

REPORT INFORMATION
  Report Type: Report from Study
  Country: US (occurrence: US)
  Receive Date: 20130412
  Receipt Date: 20130723
  Transmission Date: 20140515
  Serious: Yes (Hospitalization)
  Sender: FDA-Public Use
  Company Number: US-ABBOTT-13P-163-1072133-00

PATIENT
  Age: 34 Year
  Sex: Female
  Weight: 61.74 kg

DRUGS (2)
  1. HUMIRA [Suspect]
     Indication: CROHN^S DISEASE
     Route: 058
     Dates: end: 200810
  2. TRAMADOL [Concomitant]
     Indication: PAIN

REACTIONS (4)
  - Large intestine perforation [Recovered/Resolved]
  - Malaise [Unknown]
  - Abdominal pain [Unknown]
  - Weight decreased [Unknown]
